FAERS Safety Report 9416084 (Version 1)
Quarter: 2013Q3

REPORT INFORMATION
  Report Type: Spontaneous
  Country: US (occurrence: None)
  Receive Date: 20130723
  Receipt Date: 20130723
  Transmission Date: 20140515
  Serious: Yes (Hospitalization)
  Sender: FDA-Public Use
  Company Number: None

PATIENT
  Age: 20 Year
  Sex: Female
  Weight: 47.6 kg

DRUGS (1)
  1. GAMMAKED [Suspect]
     Indication: POLYNEUROPATHY
     Route: 041
     Dates: start: 20130611, end: 20130613

REACTIONS (2)
  - Chest pain [None]
  - Nausea [None]
